FAERS Safety Report 16878365 (Version 2)
Quarter: 2019Q4

REPORT INFORMATION
  Report Type: Report from Study
  Country: AU (occurrence: AU)
  Receive Date: 20191002
  Receipt Date: 20191125
  Transmission Date: 20200122
  Serious: Yes (Hospitalization, Other)
  Sender: FDA-Public Use
  Company Number: PHHO2016AU014049

PATIENT
  Age: 51 Year
  Sex: Female

DRUGS (8)
  1. INNER HEALTH PLUS [Concomitant]
     Indication: GENERAL PHYSICAL CONDITION
     Dosage: 1 DF, QD
     Route: 048
     Dates: start: 20131217
  2. BAF312 [Suspect]
     Active Substance: SIPONIMOD
     Indication: SECONDARY PROGRESSIVE MULTIPLE SCLEROSIS
     Dosage: 2 MG, QD
     Route: 048
     Dates: start: 20160615
  3. PLACEBO [Suspect]
     Active Substance: UNSPECIFIED INGREDIENT
     Indication: SECONDARY PROGRESSIVE MULTIPLE SCLEROSIS
     Dosage: UNK
     Route: 048
     Dates: start: 20130913, end: 20160218
  4. LEVETIRACETAM. [Concomitant]
     Active Substance: LEVETIRACETAM
     Indication: SEIZURE
     Dosage: 750 UNK, BID
     Route: 048
     Dates: start: 20170110
  5. GABAPENTIN. [Concomitant]
     Active Substance: GABAPENTIN
     Indication: SEIZURE
     Dosage: 100 MG, QD
     Route: 048
     Dates: start: 20160708
  6. ESCITALOPRAM [Concomitant]
     Active Substance: ESCITALOPRAM OXALATE
     Indication: DEPRESSION
     Dosage: 10 MG, QD
     Route: 048
     Dates: start: 20180719
  7. BACLOFEN. [Concomitant]
     Active Substance: BACLOFEN
     Indication: MUSCLE SPASTICITY
     Dosage: 10 MG, BID
     Route: 048
     Dates: start: 20180718
  8. OSTELIN [Concomitant]
     Indication: GENERAL PHYSICAL CONDITION
     Dosage: 25 MG, QD
     Route: 048
     Dates: start: 20180718

REACTIONS (1)
  - Lower respiratory tract infection [Recovered/Resolved]

NARRATIVE: CASE EVENT DATE: 20160922
